FAERS Safety Report 6833866-6 (Version None)
Quarter: 2010Q3

REPORT INFORMATION
  Report Type: 
  Country: None (occurrence: None)
  Receive Date: 20100712
  Receipt Date: 20070404
  Transmission Date: 20110219
  Serious: No
  Sender: FDA-Public Use
  Company Number: US-PFIZER INC-2007027970

PATIENT
  Sex: Female
  Weight: 79.38 kg

DRUGS (5)
  1. CHANTIX [Suspect]
     Indication: SMOKING CESSATION THERAPY
     Route: 048
     Dates: start: 20070316, end: 20070329
  2. NO PRODUCT FOUND [Suspect]
  3. METHADONE HCL [Concomitant]
  4. VITAMIN C [Concomitant]
  5. LYSINE [Concomitant]

REACTIONS (3)
  - DYSGEUSIA [None]
  - NAUSEA [None]
  - VOMITING [None]
